FAERS Safety Report 10704714 (Version 1)
Quarter: 2014Q4

REPORT INFORMATION
  Report Type: Report from Study
  Country: US (occurrence: None)
  Receive Date: 20141224
  Receipt Date: 20141224
  Transmission Date: 20150529
  Serious: No
  Sender: FDA-Public Use
  Company Number: CABO-14004704

PATIENT
  Age: 54 Year
  Sex: Female

DRUGS (6)
  1. OMEPRAZOLE (OMEPRAZOLE) [Concomitant]
     Active Substance: OMEPRAZOLE
  2. COMETRIQ [Suspect]
     Active Substance: CABOZANTINIB S-MALATE
     Indication: THYROID CANCER
     Route: 048
     Dates: start: 20140822, end: 2014
  3. METFORMIN [Concomitant]
     Active Substance: METFORMIN HYDROCHLORIDE
  4. IMODIUM (LOPERAMIDE HYDROCHLORIDE) [Concomitant]
  5. DIOVAN [Concomitant]
     Active Substance: VALSARTAN
  6. NORVASC [Concomitant]
     Active Substance: AMLODIPINE BESYLATE

REACTIONS (17)
  - Pain in extremity [None]
  - Oropharyngeal pain [None]
  - Abasia [None]
  - Hypertension [None]
  - Acne [None]
  - Dry skin [None]
  - Palmar-plantar erythrodysaesthesia syndrome [None]
  - Diarrhoea [None]
  - Dysphonia [None]
  - Stomatitis [None]
  - Skin ulcer [None]
  - Blister [None]
  - Hyperkeratosis [None]
  - Oral mucosal blistering [None]
  - Off label use [None]
  - Muscle spasms [None]
  - Headache [None]

NARRATIVE: CASE EVENT DATE: 2014
